FAERS Safety Report 24696720 (Version 1)
Quarter: 2024Q4

REPORT INFORMATION
  Report Type: Spontaneous
  Country: US (occurrence: US)
  Receive Date: 20241204
  Receipt Date: 20241204
  Transmission Date: 20250115
  Serious: No
  Sender: PACIRA
  Company Number: US-ORG100016242-2024000227

PATIENT

DRUGS (1)
  1. ZILRETTA [Suspect]
     Active Substance: TRIAMCINOLONE ACETONIDE
     Indication: Product used for unknown indication
     Dosage: KNEE JOINTS
     Route: 050
     Dates: start: 20240514, end: 20240514

REACTIONS (4)
  - Liquid product physical issue [Unknown]
  - Product deposit [Unknown]
  - Incorrect dose administered [Unknown]
  - No adverse event [Unknown]
